FAERS Safety Report 7437893-X (Version None)
Quarter: 2011Q2

REPORT INFORMATION
  Report Type: 
  Country: None (occurrence: None)
  Receive Date: 20110426
  Receipt Date: 20110420
  Transmission Date: 20111010
  Serious: Yes (Hospitalization)
  Sender: FDA-Public Use
  Company Number: B0712363A

PATIENT
  Sex: Female
  Weight: 85.5 kg

DRUGS (1)
  1. AVANDIA [Suspect]
     Route: 048

REACTIONS (5)
  - HYPERTENSION [None]
  - LIVER INJURY [None]
  - RENAL INJURY [None]
  - CARDIOMYOPATHY [None]
  - CARDIAC FAILURE CONGESTIVE [None]
